FAERS Safety Report 5269304-7 (Version None)
Quarter: 2007Q1

REPORT INFORMATION
  Report Type: 
  Country: None (occurrence: None)
  Receive Date: 20070319
  Receipt Date: 20070308
  Transmission Date: 20070707
  Serious: Yes (Other)
  Sender: FDA-Public Use
  Company Number: AU-PFIZER INC-2007016334

PATIENT
  Age: 45 Year
  Sex: Female

DRUGS (1)
  1. ALDACTONE [Suspect]
     Indication: ALOPECIA

REACTIONS (2)
  - UTERINE LEIOMYOMA [None]
  - VAGINAL CYST [None]
